FAERS Safety Report 7451503-7 (Version None)
Quarter: 2011Q2

REPORT INFORMATION
  Report Type: 
  Country: None (occurrence: None)
  Receive Date: 20110425
  Receipt Date: 20110413
  Transmission Date: 20111010
  Serious: Yes (Other)
  Sender: FDA-Public Use
  Company Number: MPS1-1000488

PATIENT
  Age: 14 Year
  Sex: Male

DRUGS (1)
  1. ALDURAZYME [Suspect]
     Indication: MUCOPOLYSACCHARIDOSIS
     Dosage: INTRAVENOUS
     Route: 042
     Dates: end: 20101201

REACTIONS (2)
  - DRUG INEFFECTIVE [None]
  - HAEMORRHOIDS [None]
